FAERS Safety Report 8408606-X (Version None)
Quarter: 2012Q2

REPORT INFORMATION
  Report Type: 
  Country: None (occurrence: None)
  Receive Date: 20120604
  Receipt Date: 20120213
  Transmission Date: 20120825
  Serious: No
  Sender: FDA-Public Use
  Company Number: US-NOVEN-12US004095

PATIENT
  Sex: Female
  Weight: 22.676 kg

DRUGS (3)
  1. TRILEPTAL [Concomitant]
     Indication: CONVULSION
     Route: 048
  2. DAYTRANA [Suspect]
     Indication: ATTENTION DEFICIT/HYPERACTIVITY DISORDER
     Dosage: 30 MG, QD
     Dates: start: 20120213
  3. RISPERDAL [Concomitant]
     Indication: CONVULSION
     Route: 048

REACTIONS (3)
  - WRONG TECHNIQUE IN DRUG USAGE PROCESS [None]
  - APPLICATION SITE ERYTHEMA [None]
  - APPLICATION SITE WARMTH [None]
